FAERS Safety Report 10162958 (Version 1)
Quarter: 2014Q2

REPORT INFORMATION
  Report Type: Spontaneous
  Country: US (occurrence: US)
  Receive Date: 20140509
  Receipt Date: 20140509
  Transmission Date: 20141212
  Serious: No
  Sender: FDA-Public Use
  Company Number: US-PFIZER INC-2014125390

PATIENT
  Age: 76 Year
  Sex: Male
  Weight: 108.84 kg

DRUGS (2)
  1. TIKOSYN [Suspect]
     Indication: ATRIAL FIBRILLATION
     Dosage: 250 UG, 2X/DAY
     Dates: start: 20140501
  2. IRON [Concomitant]
     Indication: BLOOD COUNT ABNORMAL
     Dosage: 325 MG, 2X/DAY

REACTIONS (1)
  - Urinary incontinence [Not Recovered/Not Resolved]
